FAERS Safety Report 17899075 (Version 1)
Quarter: 2020Q2

REPORT INFORMATION
  Report Type: Spontaneous
  Country: PT (occurrence: PT)
  Receive Date: 20200616
  Receipt Date: 20200616
  Transmission Date: 20200714
  Serious: Yes (Life-Threatening, Hospitalization)
  Sender: FDA-Public Use
  Company Number: PT-HIKMA PHARMACEUTICALS USA INC.-PT-H14001-20-51494

PATIENT
  Age: 50 Year
  Sex: Male
  Weight: 60 kg

DRUGS (1)
  1. CEFAZOLINA HIKMA [Suspect]
     Active Substance: CEFAZOLIN SODIUM
     Indication: PROPHYLAXIS
     Route: 042
     Dates: start: 20200519, end: 20200519

REACTIONS (3)
  - Rash papular [Recovered/Resolved]
  - Angioedema [Recovered/Resolved]
  - Rash [Recovered/Resolved]

NARRATIVE: CASE EVENT DATE: 20200519
